FAERS Safety Report 9342427 (Version 2)
Quarter: 2013Q3

REPORT INFORMATION
  Report Type: Spontaneous
  Country: JP (occurrence: JP)
  Receive Date: 20130611
  Receipt Date: 20130911
  Transmission Date: 20140515
  Serious: Yes (Other)
  Sender: FDA-Public Use
  Company Number: PHHY2013JP058070

PATIENT
  Age: 13 Year
  Sex: Female

DRUGS (9)
  1. VALPROIC ACID [Suspect]
     Dosage: UNK UKN, UNK
  2. ACETAZOLAMIDE [Concomitant]
     Dosage: UNK UKN, UNK
     Route: 048
  3. FLECAINIDE ACETATE [Concomitant]
     Dosage: UNK UKN, UNK
     Route: 048
  4. PROPAFENONE HYDROCHLORIDE [Concomitant]
     Dosage: UNK UKN, UNK
     Route: 048
  5. GABAPENTIN [Concomitant]
     Dosage: UNK UKN, UNK
     Route: 048
  6. MEXILETINE [Concomitant]
     Dosage: UNK UKN, UNK
  7. MEXILETINE [Concomitant]
     Dosage: 450 MG, DAILY
  8. DIAMOX                                  /CAN/ [Concomitant]
     Dosage: 250 MG, DAILY
     Route: 048
     Dates: start: 20121110, end: 20121205
  9. CARBAMAZEPINE [Suspect]
     Indication: MYOTONIA
     Dosage: 200 MG, DAILY
     Route: 048
     Dates: start: 20121110, end: 20121205

REACTIONS (2)
  - Myoclonic epilepsy [Recovered/Resolved]
  - Drug ineffective [Unknown]
